FAERS Safety Report 25846207 (Version 2)
Quarter: 2025Q4

REPORT INFORMATION
  Report Type: Report from Study
  Country: US (occurrence: US)
  Receive Date: 20250925
  Receipt Date: 20251007
  Transmission Date: 20260118
  Serious: No
  Sender: ABBVIE
  Company Number: US-ABBVIE-6472550

PATIENT
  Age: 56 Year
  Sex: Female

DRUGS (2)
  1. BOTOX COSMETIC [Suspect]
     Active Substance: ONABOTULINUMTOXINA
     Indication: Skin wrinkling
     Dosage: TIME INTERVAL: AS NECESSARY: DOSE: 12 UNITS ON EACH SIDE
     Route: 065
     Dates: start: 20250909, end: 20250909
  2. BOTOX COSMETIC [Suspect]
     Active Substance: ONABOTULINUMTOXINA
     Indication: Skin wrinkling
     Dosage: TIME INTERVAL: AS NECESSARY
     Route: 065

REACTIONS (4)
  - Periorbital swelling [Not Recovered/Not Resolved]
  - Skin wrinkling [Recovered/Resolved]
  - Drug ineffective [Unknown]
  - Skin wrinkling [Unknown]

NARRATIVE: CASE EVENT DATE: 20250901
